FAERS Safety Report 7329390-7 (Version None)
Quarter: 2011Q1

REPORT INFORMATION
  Report Type: 
  Country: None (occurrence: None)
  Receive Date: 20110228
  Receipt Date: 20110228
  Transmission Date: 20110831
  Serious: No
  Sender: FDA-Public Use
  Company Number: None

PATIENT
  Age: 60 Year
  Sex: Female
  Weight: 63.5036 kg

DRUGS (1)
  1. VIGAMOX [Suspect]
     Indication: CONJUNCTIVITIS
     Dates: start: 20110212, end: 20110220

REACTIONS (3)
  - PARAESTHESIA [None]
  - IMPAIRED WORK ABILITY [None]
  - HYPOAESTHESIA [None]
